FAERS Safety Report 6266087-9 (Version None)
Quarter: 2009Q3

REPORT INFORMATION
  Report Type: 
  Country: None (occurrence: None)
  Receive Date: 20090713
  Receipt Date: 20090630
  Transmission Date: 20100115
  Serious: Yes (Hospitalization)
  Sender: FDA-Public Use
  Company Number: IT-ELI_LILLY_AND_COMPANY-IT200906006974

PATIENT
  Sex: Male

DRUGS (6)
  1. CYMBALTA [Suspect]
     Indication: MAJOR DEPRESSION
     Dosage: 60 MG, DAILY (1/D)
     Route: 048
     Dates: start: 20071212
  2. CARVEDILOL [Concomitant]
     Dosage: 25 MG, UNKNOWN
     Route: 048
     Dates: start: 20080101
  3. NORVASC [Concomitant]
     Dosage: 10 MG, UNKNOWN
     Route: 048
     Dates: start: 20080101
  4. TRIATEC [Concomitant]
     Dosage: 5 MG, UNKNOWN
     Route: 048
     Dates: start: 20080101
  5. XATRAL /00975302/ [Concomitant]
     Dosage: 10 MG, UNKNOWN
     Route: 048
     Dates: start: 20080101
  6. ZANEDIP [Concomitant]
     Dosage: 10 MG, UNKNOWN
     Route: 048
     Dates: start: 20080101

REACTIONS (4)
  - ANKLE FRACTURE [None]
  - FALL [None]
  - HYPOTENSION [None]
  - SYNCOPE [None]
